FAERS Safety Report 12908437 (Version 2)
Quarter: 2016Q4

REPORT INFORMATION
  Report Type: Spontaneous
  Country: US (occurrence: US)
  Receive Date: 20161103
  Receipt Date: 20161130
  Transmission Date: 20170207
  Serious: No
  Sender: FDA-Public Use
  Company Number: US-PFIZER INC-2016513970

PATIENT
  Age: 50 Year
  Sex: Female
  Weight: 91 kg

DRUGS (1)
  1. PRISTIQ EXTENDED-RELEASE [Suspect]
     Active Substance: DESVENLAFAXINE SUCCINATE
     Indication: BIPOLAR DISORDER
     Dosage: 50 MG, 1X/DAY
     Route: 048

REACTIONS (5)
  - Malaise [Unknown]
  - Nausea [Unknown]
  - Withdrawal syndrome [Unknown]
  - Tinnitus [Unknown]
  - Dizziness [Unknown]
